FAERS Safety Report 9062154 (Version 4)
Quarter: 2013Q2

REPORT INFORMATION
  Report Type: Spontaneous
  Country: US (occurrence: US)
  Receive Date: 20130128
  Receipt Date: 20130425
  Transmission Date: 20140414
  Serious: Yes (Other)
  Sender: FDA-Public Use
  Company Number: US-ASTELLAS-2013US000846

PATIENT
  Age: 63 Year
  Sex: Male

DRUGS (4)
  1. XTANDI [Suspect]
     Indication: PROSTATE CANCER
     Dosage: UNK
     Route: 048
     Dates: start: 20121128, end: 20130114
  2. XTANDI [Suspect]
     Dosage: 80 MG, UNKNOWN/D
     Route: 048
     Dates: start: 201301
  3. PROCRIT                            /00909301/ [Concomitant]
     Indication: HAEMOGLOBIN ABNORMAL
     Dosage: UNK
     Route: 065
  4. MEDICATION [Concomitant]
     Indication: PRODUCT USED FOR UNKNOWN INDICATION
     Dosage: UNK
     Route: 065

REACTIONS (5)
  - Leukaemia [Unknown]
  - Haemoglobin decreased [Unknown]
  - Malignant neoplasm progression [Not Recovered/Not Resolved]
  - Confusional state [Unknown]
  - Fatigue [Unknown]
